FAERS Safety Report 5317168-5 (Version None)
Quarter: 2007Q2

REPORT INFORMATION
  Report Type: 
  Country: None (occurrence: None)
  Receive Date: 20070504
  Receipt Date: 20070425
  Transmission Date: 20071010
  Serious: Yes (Hospitalization)
  Sender: FDA-Public Use
  Company Number: FR-PFIZER INC-2007009313

PATIENT
  Sex: Female
  Weight: 76 kg

DRUGS (7)
  1. CELEBREX [Suspect]
     Indication: OSTEOARTHRITIS
     Dates: start: 20060820, end: 20061202
  2. ZESTRIL [Concomitant]
  3. LERCAN [Concomitant]
  4. LIPANTHYL [Concomitant]
  5. TENORMIN [Concomitant]
  6. TRIVASTAL [Concomitant]
  7. FOSAVANCE [Concomitant]

REACTIONS (3)
  - ARRHYTHMIA [None]
  - ATRIAL FIBRILLATION [None]
  - HYPERTENSION [None]
